FAERS Safety Report 7833334-9 (Version None)
Quarter: 2011Q4

REPORT INFORMATION
  Report Type: 
  Country: None (occurrence: None)
  Receive Date: 20111024
  Receipt Date: 20111019
  Transmission Date: 20120403
  Serious: Yes (Death, Other)
  Sender: FDA-Public Use
  Company Number: GB-NAPPMUNDI-GBR-2011-0008936

PATIENT
  Age: 19 Year

DRUGS (5)
  1. MORPHINE SULFATE [Suspect]
     Indication: PAIN
     Route: 065
  2. GABAPENTIN [Suspect]
     Indication: PRODUCT USED FOR UNKNOWN INDICATION
  3. BENZODIAZEPINE DERIVATIVES [Suspect]
     Indication: PRODUCT USED FOR UNKNOWN INDICATION
  4. PROPOFOL [Suspect]
     Indication: PRODUCT USED FOR UNKNOWN INDICATION
  5. H2-RECEPTOR ANTAGONISTS [Suspect]
     Indication: PRODUCT USED FOR UNKNOWN INDICATION

REACTIONS (4)
  - INTESTINAL INFARCTION [None]
  - ENTEROBACTER SEPSIS [None]
  - PYREXIA [None]
  - RHABDOMYOLYSIS [None]
